FAERS Safety Report 7298397-0 (Version None)
Quarter: 2011Q1

REPORT INFORMATION
  Report Type: 
  Country: None (occurrence: None)
  Receive Date: 20110217
  Receipt Date: 20100614
  Transmission Date: 20110831
  Serious: Yes (Other)
  Sender: FDA-Public Use
  Company Number: US-PFIZER INC-2010053253

PATIENT
  Sex: Male
  Weight: 115 kg

DRUGS (11)
  1. HYDROCHLOROTHIAZIDE [Concomitant]
     Dosage: 25 MG, UNK
  2. SIMVASTATIN [Concomitant]
     Dosage: 80 MG, UNK
  3. SPIRONOLACTONE [Concomitant]
     Dosage: 5 MG, UNK
  4. ACETYLSALICYLIC ACID [Concomitant]
     Dosage: UNK
  5. AMLODIPINE BESILATE [Concomitant]
     Dosage: 10 MG, UNK
  6. METOPROLOL [Concomitant]
     Dosage: 50 MG, UNK
  7. ISOSORBIDE MONONITRATE [Concomitant]
     Dosage: 30 MG, UNK
  8. XALATAN [Suspect]
     Indication: OCULAR HYPERTENSION
     Dosage: 1 DROP DAILY IN EACH EYE AT BEDTIME
     Route: 047
     Dates: start: 20081014
  9. LOSARTAN [Concomitant]
     Dosage: 50 MG, UNK
  10. CLOPIDOGREL [Concomitant]
     Dosage: 75 MG, UNK
  11. TERAZOSIN [Concomitant]
     Dosage: 10 MG, UNK

REACTIONS (6)
  - EYE PAIN [None]
  - OCULAR HYPERAEMIA [None]
  - EYE IRRITATION [None]
  - DRY EYE [None]
  - VISION BLURRED [None]
  - EYE PRURITUS [None]
